FAERS Safety Report 24641134 (Version 1)
Quarter: 2024Q4

REPORT INFORMATION
  Report Type: Spontaneous
  Country: US (occurrence: None)
  Receive Date: 20241119
  Receipt Date: 20241119
  Transmission Date: 20250114
  Serious: Yes (Hospitalization)
  Sender: Public
  Company Number: None

PATIENT
  Sex: Female

DRUGS (2)
  1. PROCRIT [Suspect]
     Active Substance: ERYTHROPOIETIN
     Indication: Anaemia
     Dosage: OTHER QUANTITY : INJECT 1 ML;?FREQUENCY : WEEKLY;?
     Route: 058
     Dates: start: 20240730
  2. POMALYST [Concomitant]
     Active Substance: POMALIDOMIDE

REACTIONS (2)
  - Ear infection [None]
  - Gastritis [None]
